FAERS Safety Report 4968757-9 (Version None)
Quarter: 2006Q2

REPORT INFORMATION
  Report Type: 
  Country: None (occurrence: None)
  Receive Date: 20060411
  Receipt Date: 20060330
  Transmission Date: 20061013
  Serious: Yes (Other)
  Sender: FDA-Public Use
  Company Number: US-BRISTOL-MYERS SQUIBB COMPANY-13332077

PATIENT
  Age: 86 Year
  Sex: Male
  Weight: 102 kg

DRUGS (3)
  1. COUMADIN [Suspect]
     Indication: ATRIAL FIBRILLATION
     Dates: start: 19990101
  2. PLENDIL [Concomitant]
  3. KLOTRIX [Concomitant]

REACTIONS (1)
  - MACULAR DEGENERATION [None]
